FAERS Safety Report 10220765 (Version 1)
Quarter: 2014Q2

REPORT INFORMATION
  Report Type: Spontaneous
  Country: US (occurrence: None)
  Receive Date: 20140605
  Receipt Date: 20140605
  Transmission Date: 20141212
  Serious: No
  Sender: FDA-Public Use
  Company Number: None

PATIENT
  Age: 63 Year
  Sex: Male
  Weight: 98.88 kg

DRUGS (1)
  1. SPRYCEL [Suspect]

REACTIONS (2)
  - Cough [None]
  - Dyspnoea [None]
